FAERS Safety Report 22251330 (Version 1)
Quarter: 2023Q2

REPORT INFORMATION
  Report Type: Spontaneous
  Country: US (occurrence: None)
  Receive Date: 20230424
  Receipt Date: 20230424
  Transmission Date: 20230722
  Serious: Yes (Other)
  Sender: FDA-Public Use
  Company Number: None

PATIENT
  Sex: Female

DRUGS (7)
  1. ENBREL [Suspect]
     Active Substance: ETANERCEPT
     Indication: Rheumatoid arthritis
     Dosage: INJECT 50 MG UNDER THE SKIN (SUBCUTANEOUS INJECTION) WEEKLY
     Dates: start: 20210605
  2. ACYCLOVIR TAB [Concomitant]
  3. CYANOCOBALAM INJ [Concomitant]
  4. EPINEPHRINE INJ [Concomitant]
  5. LOSARTAN POT TAB [Concomitant]
  6. PREDNISONE [Concomitant]
     Active Substance: PREDNISONE
  7. VITAMIN D CAP [Concomitant]

REACTIONS (1)
  - Surgery [None]
